FAERS Safety Report 22667522 (Version 4)
Quarter: 2023Q4

REPORT INFORMATION
  Report Type: Spontaneous
  Country: US (occurrence: US)
  Receive Date: 20230704
  Receipt Date: 20231121
  Transmission Date: 20240110
  Serious: No
  Sender: FDA-Public Use
  Company Number: US-BRISTOL-MYERS SQUIBB COMPANY-2023-092380

PATIENT
  Age: 65 Year
  Sex: Male
  Weight: 117.93 kg

DRUGS (6)
  1. LENALIDOMIDE [Suspect]
     Active Substance: LENALIDOMIDE
     Indication: Plasma cell myeloma
     Dosage: FREQUENCY: DAILY 7 DAYS ON AND 7 DAYS OFF?FREQUENCY: DAILY 7 DAYS ON, 7 DAYS OFF, 7 DAYS ON, 7 OFF F
     Route: 048
     Dates: start: 20221216, end: 20231116
  2. LENALIDOMIDE [Suspect]
     Active Substance: LENALIDOMIDE
     Route: 048
     Dates: start: 20230608
  3. LOSARTAN [Concomitant]
     Active Substance: LOSARTAN
     Indication: Product used for unknown indication
     Route: 048
     Dates: start: 20211111
  4. FINASTERIDE [Concomitant]
     Active Substance: FINASTERIDE
     Indication: Product used for unknown indication
     Route: 048
     Dates: start: 20211111
  5. MELOXICAM [Concomitant]
     Active Substance: MELOXICAM
     Indication: Product used for unknown indication
     Route: 048
     Dates: start: 20230412
  6. TAMSULOSIN [Concomitant]
     Active Substance: TAMSULOSIN
     Indication: Product used for unknown indication
     Route: 048
     Dates: start: 20211111

REACTIONS (5)
  - Vitamin D decreased [Not Recovered/Not Resolved]
  - Muscle spasms [Not Recovered/Not Resolved]
  - Off label use [Unknown]
  - Treatment noncompliance [Unknown]
  - Full blood count decreased [Unknown]
